FAERS Safety Report 10393488 (Version 1)
Quarter: 2014Q3

REPORT INFORMATION
  Report Type: Spontaneous
  Country: IQ (occurrence: IQ)
  Receive Date: 20140819
  Receipt Date: 20140819
  Transmission Date: 20150326
  Serious: Yes (Life-Threatening, Hospitalization, Other)
  Sender: FDA-Public Use
  Company Number: IQ-GLAXOSMITHKLINE-B1024879A

PATIENT
  Age: 18 Year
  Sex: Male

DRUGS (1)
  1. ZINACEF [Suspect]
     Active Substance: CEFUROXIME SODIUM
     Indication: URINARY TRACT INFECTION
     Dosage: 750MG THREE TIMES PER DAY
     Route: 042
     Dates: start: 20140807, end: 20140808

REACTIONS (2)
  - Urticaria [Recovered/Resolved]
  - Hypotension [Recovered/Resolved]

NARRATIVE: CASE EVENT DATE: 20140807
